FAERS Safety Report 25876303 (Version 2)
Quarter: 2025Q4

REPORT INFORMATION
  Report Type: Report from Study
  Country: BR (occurrence: BR)
  Receive Date: 20251003
  Receipt Date: 20251008
  Transmission Date: 20260118
  Serious: No
  Sender: ALEXION PHARMACEUTICALS
  Company Number: BR-AstraZeneca-CH-00960932A

PATIENT
  Age: 10 Year
  Sex: Male

DRUGS (1)
  1. BUDESONIDE\FORMOTEROL [Suspect]
     Active Substance: BUDESONIDE\FORMOTEROL
     Dosage: 6/100MCG
     Route: 065

REACTIONS (1)
  - No adverse event [Unknown]
